FAERS Safety Report 6362075-2 (Version None)
Quarter: 2009Q3

REPORT INFORMATION
  Report Type: 
  Country: None (occurrence: None)
  Receive Date: 20090918
  Receipt Date: 20090909
  Transmission Date: 20100115
  Serious: Yes (Other)
  Sender: FDA-Public Use
  Company Number: PHHY2009ES38441

PATIENT
  Age: 70 Year
  Sex: Female

DRUGS (6)
  1. EXELON [Suspect]
     Indication: DEMENTIA ALZHEIMER'S TYPE
     Dosage: UNK
     Route: 048
     Dates: start: 20081001, end: 20090401
  2. EXELON [Suspect]
     Indication: DEMENTIA ALZHEIMER'S TYPE
     Dosage: 4,6MG DAILY
     Route: 062
     Dates: start: 20090401, end: 20090601
  3. EXELON [Suspect]
     Dosage: 9,5MG DAILY
     Route: 062
     Dates: start: 20090601
  4. DEPRAX [Concomitant]
     Dosage: UNK
  5. PREVENCOR [Concomitant]
     Dosage: UNK
  6. SOMAZINA [Concomitant]
     Dosage: UNK

REACTIONS (4)
  - APPLICATION SITE ERYTHEMA [None]
  - DIZZINESS [None]
  - LOSS OF CONSCIOUSNESS [None]
  - NAUSEA [None]
